FAERS Safety Report 12977769 (Version 2)
Quarter: 2016Q4

REPORT INFORMATION
  Report Type: Spontaneous
  Country: US (occurrence: US)
  Receive Date: 20161128
  Receipt Date: 20161221
  Transmission Date: 20170207
  Serious: Yes (Other)
  Sender: FDA-Public Use
  Company Number: US-AMGEN-USASP2016165128

PATIENT
  Age: 79 Year
  Sex: Female

DRUGS (1)
  1. PROLIA [Suspect]
     Active Substance: DENOSUMAB
     Indication: OSTEOPOROSIS POSTMENOPAUSAL
     Dosage: UNK
     Route: 065
     Dates: start: 2015

REACTIONS (9)
  - Paraesthesia [Unknown]
  - Dyspnoea [Unknown]
  - Back pain [Not Recovered/Not Resolved]
  - Musculoskeletal pain [Unknown]
  - Heart valve incompetence [Unknown]
  - Activities of daily living impaired [Unknown]
  - Abdominal pain upper [Unknown]
  - Abasia [Not Recovered/Not Resolved]
  - Pain in extremity [Not Recovered/Not Resolved]

NARRATIVE: CASE EVENT DATE: 201609
